FAERS Safety Report 9347674 (Version 1)
Quarter: 2013Q2

REPORT INFORMATION
  Report Type: Spontaneous
  Country: RO (occurrence: RO)
  Receive Date: 20130614
  Receipt Date: 20130614
  Transmission Date: 20140414
  Serious: Yes (Hospitalization, Other)
  Sender: FDA-Public Use
  Company Number: RO-ASTRAZENECA-2013SE41966

PATIENT
  Age: 49 Year
  Sex: Male

DRUGS (5)
  1. SYMBICORT TURBUHALER [Suspect]
     Indication: ASTHMA
     Dosage: 160/4,5 MICROGRAMS, UNKNOWN FREQUENCY.
     Route: 055
     Dates: start: 200704
  2. DESLORATADINUM + PSEUDOEPHEDRINE [Concomitant]
     Route: 048
     Dates: start: 20130204
  3. BETAMETAZONA [Concomitant]
  4. CEFTRIAXONUM [Concomitant]
     Dates: start: 20130204
  5. SOLUMEDROL [Concomitant]
     Dates: start: 20130204

REACTIONS (5)
  - Asthma [Unknown]
  - Interstitial lung disease [Recovered/Resolved]
  - Chronic sinusitis [Unknown]
  - Staphylococcus test positive [Unknown]
  - Rhinitis allergic [Unknown]
